FAERS Safety Report 8153229-3 (Version None)
Quarter: 2012Q1

REPORT INFORMATION
  Report Type: 
  Country: None (occurrence: None)
  Receive Date: 20120221
  Receipt Date: 20120218
  Transmission Date: 20120608
  Serious: Yes (Death, Other)
  Sender: FDA-Public Use
  Company Number: IT-JNJFOC-20120209562

PATIENT
  Age: 85 Year
  Sex: Female

DRUGS (1)
  1. RISPERDAL [Suspect]
     Indication: DEMENTIA ALZHEIMER'S TYPE
     Route: 048

REACTIONS (9)
  - DYSKINESIA [None]
  - DYSTONIA [None]
  - HYPERTHERMIA [None]
  - COMA [None]
  - HYPERGLYCAEMIA [None]
  - DEATH [None]
  - HYPOTENSION [None]
  - TACHYCARDIA [None]
  - THROMBOPHLEBITIS [None]
